FAERS Safety Report 9739206 (Version 5)
Quarter: 2016Q4

REPORT INFORMATION
  Report Type: Report from Study
  Country: FR (occurrence: FR)
  Receive Date: 20131209
  Receipt Date: 20161024
  Transmission Date: 20170207
  Serious: Yes (Other)
  Sender: FDA-Public Use
  Company Number: FR-UCBSA-104971

PATIENT
  Sex: Female
  Weight: 47 kg

DRUGS (7)
  1. CERTOLIZUMAB PEGOL RA [Suspect]
     Active Substance: CERTOLIZUMAB PEGOL
     Indication: RHEUMATOID ARTHRITIS
     Dosage: 200 MG, EV 2 WEEKS(QOW)
     Route: 058
     Dates: start: 201308, end: 20131114
  2. SINGULAIR [Concomitant]
     Active Substance: MONTELUKAST SODIUM
     Indication: ASTHMA
     Dosage: 10 MG, ONCE DAILY (QD)
     Dates: start: 2011
  3. SPIRIVA [Concomitant]
     Active Substance: TIOTROPIUM BROMIDE MONOHYDRATE
     Indication: ASTHMA
     Dosage: 18 MG, ONCE DAILY (QD)
     Dates: start: 2011
  4. SYMBICORT [Concomitant]
     Active Substance: BUDESONIDE\FORMOTEROL FUMARATE DIHYDRATE
     Indication: ASTHMA
     Dosage: 400 MG, 2X/DAY (BID)
     Dates: start: 2011
  5. APIDRA [Concomitant]
     Active Substance: INSULIN GLULISINE
     Indication: DIABETES MELLITUS
     Dosage: 12 UI, 3X/DAY (TID)
     Dates: start: 2003
  6. ROACTEMRA [Concomitant]
     Active Substance: TOCILIZUMAB
     Indication: INTERSTITIAL LUNG DISEASE
  7. LANTUS [Concomitant]
     Active Substance: INSULIN GLARGINE
     Indication: DIABETES MELLITUS
     Dosage: DAILY DOSE: 8 UI ONCE DAILY
     Dates: start: 1979

REACTIONS (2)
  - Pleurisy [Recovered/Resolved]
  - Noninfective bronchitis [Recovered/Resolved]

NARRATIVE: CASE EVENT DATE: 201309
